FAERS Safety Report 16497727 (Version 1)
Quarter: 2019Q2

REPORT INFORMATION
  Report Type: Spontaneous
  Country: KZ (occurrence: KZ)
  Receive Date: 20190628
  Receipt Date: 20190628
  Transmission Date: 20190711
  Serious: Yes (Hospitalization)
  Sender: FDA-Public Use
  Company Number: KZ-BAYER-2019-119171

PATIENT
  Age: 36 Year
  Sex: Female

DRUGS (1)
  1. BETAFERON [Suspect]
     Active Substance: INTERFERON BETA-1B
     Indication: NEUROMYELITIS OPTICA SPECTRUM DISORDER
     Dosage: 9.6 UNK, QOD
     Route: 058

REACTIONS (4)
  - Drug ineffective for unapproved indication [None]
  - Unintentional use for unapproved indication [None]
  - Neuromyelitis optica spectrum disorder [None]
  - Injection site abscess [None]
